FAERS Safety Report 24463216 (Version 1)
Quarter: 2024Q4

REPORT INFORMATION
  Report Type: Spontaneous
  Country: GB (occurrence: GB)
  Receive Date: 20241018
  Receipt Date: 20241018
  Transmission Date: 20250115
  Serious: Yes (Other)
  Sender: BRISTOL-MYERS SQUIBB COMPANY
  Company Number: None

PATIENT
  Age: 67 Year
  Sex: Male

DRUGS (3)
  1. MAVACAMTEN [Suspect]
     Active Substance: MAVACAMTEN
     Indication: Product used for unknown indication
  2. INFLUENZA VIRUS VACCINE [Concomitant]
     Active Substance: INFLUENZA VIRUS VACCINE
     Indication: Product used for unknown indication
     Dates: start: 20241008
  3. COVID-19 VACCINE [Concomitant]
     Indication: Product used for unknown indication
     Dates: start: 20241008

REACTIONS (2)
  - Dyspnoea [Recovered/Resolved]
  - Tremor [Unknown]

NARRATIVE: CASE EVENT DATE: 20241008
